FAERS Safety Report 7624396-2 (Version None)
Quarter: 2011Q3

REPORT INFORMATION
  Report Type: 
  Country: None (occurrence: None)
  Receive Date: 20110720
  Receipt Date: 20110712
  Transmission Date: 20111222
  Serious: Yes (Congenital Anomaly, Other)
  Sender: FDA-Public Use
  Company Number: US-PFIZER INC-2011158646

PATIENT
  Sex: Male
  Weight: 2 kg

DRUGS (7)
  1. EFFEXOR [Suspect]
     Indication: DEPRESSION
     Dosage: 150 MG, 1X/DAY
     Route: 064
  2. NPH INSULIN [Concomitant]
     Indication: TYPE 2 DIABETES MELLITUS
     Dosage: 72 UNITS AT NIGHT.
     Route: 064
  3. BUSPAR [Concomitant]
     Indication: DEPRESSION
     Dosage: UNK
     Route: 064
  4. PRENATAL VITAMINS [Concomitant]
     Dosage: UNK
     Route: 064
  5. AMPICILLIN [Concomitant]
     Dosage: UNK
     Route: 064
  6. HUMALOG [Concomitant]
     Indication: TYPE 2 DIABETES MELLITUS
     Dosage: 29 UNITS WITH BREAK FAST, 22 UNITS WITH LUNCH, 45 UNITS WITH DINNER
     Route: 064
  7. ACYCLOVIR [Concomitant]
     Indication: GENITAL HERPES
     Dosage: 400 MG, 2X/DAY
     Route: 064

REACTIONS (5)
  - SINGLE UMBILICAL ARTERY [None]
  - CRYPTORCHISM [None]
  - TALIPES [None]
  - INGUINAL HERNIA [None]
  - MATERNAL EXPOSURE DURING PREGNANCY [None]
